FAERS Safety Report 17279380 (Version 1)
Quarter: 2020Q1

REPORT INFORMATION
  Report Type: Report from Study
  Country: US (occurrence: US)
  Receive Date: 20200116
  Receipt Date: 20200116
  Transmission Date: 20200409
  Serious: Yes (Hospitalization)
  Sender: FDA-Public Use
  Company Number: US-NOVOPROD-706295

PATIENT
  Sex: Female

DRUGS (2)
  1. LEVEMIR [Suspect]
     Active Substance: INSULIN DETEMIR
     Indication: DIABETES MELLITUS
     Dosage: 50 IU, QD(10 U MORNING, 20 U AFTERNOON AND 20 U EVENING)
     Route: 058
  2. LEVEMIR [Suspect]
     Active Substance: INSULIN DETEMIR
     Dosage: 30 IU, QD (NOW TAKING 15 U MORNING AND 15 U AT NIGHT)
     Route: 058

REACTIONS (3)
  - Hypertension [Recovering/Resolving]
  - Loss of consciousness [Recovering/Resolving]
  - Extra dose administered [Recovering/Resolving]

NARRATIVE: CASE EVENT DATE: 201912
